FAERS Safety Report 25876552 (Version 1)
Quarter: 2025Q4

REPORT INFORMATION
  Report Type: Spontaneous
  Country: EU (occurrence: EU)
  Receive Date: 20251003
  Receipt Date: 20251003
  Transmission Date: 20260117
  Serious: Yes (Life-Threatening, Hospitalization, Other)
  Sender: RECORDATI
  Company Number: EU-ORPHANEU-2025006861

PATIENT
  Age: 28 Year
  Sex: Female

DRUGS (5)
  1. DACTINOMYCIN [Suspect]
     Active Substance: DACTINOMYCIN
     Indication: Choriocarcinoma
     Dosage: EVERY 14 DAYS (7 CYCLES OF EMA-CO)
  2. ETOPOSIDE [Suspect]
     Active Substance: ETOPOSIDE
     Indication: Choriocarcinoma
     Dosage: EVERY 14 DAYS (7 CYCLES OF EMA-CO)
  3. VINCRISTINE [Suspect]
     Active Substance: VINCRISTINE
     Indication: Choriocarcinoma
     Dosage: EVERY 14 DAYS (7 CYCLES OF EMA-CO)
  4. CYCLOPHOSPHAMIDE [Suspect]
     Active Substance: CYCLOPHOSPHAMIDE
     Indication: Choriocarcinoma
     Dosage: EVERY 14 DAYS (7 CYCLES OF EMA-CO)
  5. METHOTREXATE [Suspect]
     Active Substance: METHOTREXATE
     Indication: Choriocarcinoma
     Dosage: EVERY 14 DAYS (7 CYCLES OF EMA-CO)

REACTIONS (2)
  - Vaginal haemorrhage [Recovered/Resolved]
  - Medical device site thrombosis [Unknown]
